FAERS Safety Report 12164784 (Version 1)
Quarter: 2016Q1

REPORT INFORMATION
  Report Type: Spontaneous
  Country: US (occurrence: US)
  Receive Date: 20160309
  Receipt Date: 20160309
  Transmission Date: 20160526
  Serious: No
  Sender: FDA-Public Use
  Company Number: US-NOVELLABS-2016-US-000005

PATIENT
  Age: 26 Year
  Sex: Female
  Weight: 68.04 kg

DRUGS (1)
  1. LEVONORGESTREL (MY WAY) [Suspect]
     Active Substance: LEVONORGESTREL
     Dosage: 1 TABLET ONCE
     Route: 048
     Dates: start: 20151227, end: 20151227

REACTIONS (1)
  - Drug ineffective [Unknown]

NARRATIVE: CASE EVENT DATE: 20160203
